FAERS Safety Report 7400556-0 (Version None)
Quarter: 2011Q2

REPORT INFORMATION
  Report Type: 
  Country: None (occurrence: None)
  Receive Date: 20110407
  Receipt Date: 20110329
  Transmission Date: 20111010
  Serious: Yes (Other)
  Sender: FDA-Public Use
  Company Number: BR-ASTRAZENECA-2011SE18265

PATIENT
  Age: 5 Year
  Sex: Male

DRUGS (6)
  1. LOSEC MUPS [Suspect]
     Indication: OESOPHAGITIS
     Route: 048
     Dates: start: 20090101, end: 20090101
  2. LOSEC MUPS [Suspect]
     Route: 048
     Dates: start: 20100101, end: 20100101
  3. LOSEC MUPS [Suspect]
     Route: 048
     Dates: start: 20100101, end: 20100101
  4. RISPERDAL [Concomitant]
     Indication: SEDATIVE THERAPY
     Route: 048
  5. MOTILIUM [Concomitant]
     Indication: GASTROOESOPHAGEAL REFLUX DISEASE
     Route: 048
     Dates: start: 20060101
  6. LOSEC MUPS [Suspect]
     Indication: GASTROOESOPHAGEAL REFLUX DISEASE
     Route: 048
     Dates: start: 20090101, end: 20090101

REACTIONS (4)
  - NAUSEA [None]
  - DUODENITIS [None]
  - GASTRITIS [None]
  - PHARYNGITIS [None]
